FAERS Safety Report 14966648 (Version 2)
Quarter: 2018Q2

REPORT INFORMATION
  Report Type: Spontaneous
  Country: DE (occurrence: DE)
  Receive Date: 20180604
  Receipt Date: 20180611
  Transmission Date: 20180711
  Serious: Yes (Other)
  Sender: FDA-Public Use
  Company Number: DE-CONCORDIA PHARMACEUTICALS INC.-E2B_00012096

PATIENT
  Age: 68 Year
  Sex: Male

DRUGS (11)
  1. VITAMIN B1 [Concomitant]
     Active Substance: THIAMINE HYDROCHLORIDE
  2. JODID [Concomitant]
     Active Substance: IODINE
  3. ATORVASTATIN ABZ). [Concomitant]
  4. ZYPREXA [Concomitant]
     Active Substance: OLANZAPINE
  5. ATORVASTATIN [Concomitant]
     Active Substance: ATORVASTATIN
     Dosage: CURRENTLY TREATMENT-FREE INTERVAL
     Dates: end: 201804
  6. TEBONIN 240 [Concomitant]
  7. VALSARTAN. [Concomitant]
     Active Substance: VALSARTAN
  8. VITAMIN B6 [Concomitant]
     Active Substance: PYRIDOXINE HYDROCHLORIDE
  9. TRANYLCYPROMINE [Suspect]
     Active Substance: TRANYLCYPROMINE
     Indication: DEPRESSION
     Dosage: 20 MG TWICE DAILY
     Dates: start: 201705
  10. ASPIRIN. [Concomitant]
     Active Substance: ASPIRIN
  11. LITHIUM. [Concomitant]
     Active Substance: LITHIUM

REACTIONS (1)
  - Polyneuropathy [Not Recovered/Not Resolved]

NARRATIVE: CASE EVENT DATE: 2018
